FAERS Safety Report 21160267 (Version 1)
Quarter: 2022Q3

REPORT INFORMATION
  Report Type: Spontaneous
  Country: US (occurrence: None)
  Receive Date: 20220801
  Receipt Date: 20220801
  Transmission Date: 20221027
  Serious: Yes (Other)
  Sender: FDA-Public Use
  Company Number: None

PATIENT
  Sex: Female
  Weight: 56.25 kg

DRUGS (1)
  1. SUBOXONE [Suspect]
     Active Substance: BUPRENORPHINE HYDROCHLORIDE\NALOXONE HYDROCHLORIDE
     Indication: Drug dependence
     Dosage: FREQUENCY : TWICE A DAY;?
     Dates: start: 20161101

REACTIONS (7)
  - Dental caries [None]
  - Tooth loss [None]
  - Acne [None]
  - Nicotine dependence [None]
  - Anxiety [None]
  - Anger [None]
  - Food craving [None]
